FAERS Safety Report 6262531-1 (Version None)
Quarter: 2009Q3

REPORT INFORMATION
  Report Type: 
  Country: None (occurrence: None)
  Receive Date: 20090709
  Receipt Date: 20090630
  Transmission Date: 20100115
  Serious: Yes (Other)
  Sender: FDA-Public Use
  Company Number: US-ELI_LILLY_AND_COMPANY-US200906007020

PATIENT
  Sex: Female
  Weight: 91.61 kg

DRUGS (6)
  1. BYETTA [Suspect]
     Indication: TYPE 2 DIABETES MELLITUS
     Dosage: 5 UG, 2/D
     Route: 058
     Dates: start: 20060101
  2. BYETTA [Suspect]
     Dosage: 10 UG, 2/D
     Route: 058
  3. METFORMIN HCL [Concomitant]
     Indication: TYPE 2 DIABETES MELLITUS
     Dosage: UNK, UNKNOWN
  4. GLIMEPIRIDE [Concomitant]
     Dosage: UNK, UNKNOWN
  5. LISINOPRIL [Concomitant]
     Dosage: UNK, UNKNOWN
     Dates: end: 20090101
  6. LIPITOR [Concomitant]
     Dosage: UNK, UNKNOWN

REACTIONS (4)
  - BLOOD GLUCOSE INCREASED [None]
  - CYANOSIS [None]
  - DRUG HYPERSENSITIVITY [None]
  - LIP SWELLING [None]
